FAERS Safety Report 14468235 (Version 7)
Quarter: 2019Q1

REPORT INFORMATION
  Report Type: Report from Study
  Country: US (occurrence: US)
  Receive Date: 20180131
  Receipt Date: 20190110
  Transmission Date: 20190417
  Serious: Yes (Hospitalization, Other)
  Sender: FDA-Public Use
  Company Number: US-ASTRAZENECA-2017SF15770

PATIENT
  Age: 19815 Day
  Sex: Female
  Weight: 60.8 kg

DRUGS (14)
  1. SYMBICORT [Suspect]
     Active Substance: BUDESONIDE\FORMOTEROL FUMARATE DIHYDRATE
     Indication: CHRONIC OBSTRUCTIVE PULMONARY DISEASE
     Dosage: 160/4.5MCG, 1 INHALATION, TWO TIMES DAILY
     Route: 055
     Dates: start: 20171212
  2. BEVESPI AEROSPHERE [Suspect]
     Active Substance: FORMOTEROL FUMARATE\GLYCOPYRROLATE
     Dosage: TWO PUFFS TWICE DAILY
     Route: 055
     Dates: start: 20180521
  3. TUDORZA PRESSAIR [Suspect]
     Active Substance: ACLIDINIUM BROMIDE
     Indication: CHRONIC OBSTRUCTIVE PULMONARY DISEASE
     Route: 055
     Dates: start: 20171212
  4. SYMBICORT [Suspect]
     Active Substance: BUDESONIDE\FORMOTEROL FUMARATE DIHYDRATE
     Indication: EMPHYSEMA
     Dosage: 160/4.5MCG, 1 INHALATION, TWO TIMES DAILY
     Route: 055
     Dates: start: 20171212
  5. SYNTHROID [Concomitant]
     Active Substance: LEVOTHYROXINE SODIUM
     Indication: HYPOTHYROIDISM
     Route: 048
     Dates: start: 1999
  6. TUDORZA PRESSAIR [Suspect]
     Active Substance: ACLIDINIUM BROMIDE
     Indication: EMPHYSEMA
     Route: 055
     Dates: start: 2016
  7. ADVAIR HFA [Suspect]
     Active Substance: FLUTICASONE PROPIONATE\SALMETEROL XINAFOATE
     Indication: CHRONIC OBSTRUCTIVE PULMONARY DISEASE
     Route: 055
  8. ADVAIR HFA [Suspect]
     Active Substance: FLUTICASONE PROPIONATE\SALMETEROL XINAFOATE
     Indication: EMPHYSEMA
     Route: 055
  9. OXYGEN. [Concomitant]
     Active Substance: OXYGEN
  10. TUDORZA PRESSAIR [Suspect]
     Active Substance: ACLIDINIUM BROMIDE
     Indication: EMPHYSEMA
     Route: 055
     Dates: start: 20171212
  11. TUDORZA PRESSAIR [Suspect]
     Active Substance: ACLIDINIUM BROMIDE
     Indication: CHRONIC OBSTRUCTIVE PULMONARY DISEASE
     Route: 055
     Dates: start: 2016
  12. PULMICORT FLEXHALER [Suspect]
     Active Substance: BUDESONIDE
     Indication: CHRONIC OBSTRUCTIVE PULMONARY DISEASE
     Dosage: 2 PUFFS TWICE DAILY
     Route: 055
     Dates: start: 20181121
  13. PREDNISONE. [Concomitant]
     Active Substance: PREDNISONE
     Indication: CHRONIC OBSTRUCTIVE PULMONARY DISEASE
     Route: 048
  14. PULMICORT FLEXHALER [Suspect]
     Active Substance: BUDESONIDE
     Indication: CHRONIC OBSTRUCTIVE PULMONARY DISEASE
     Dosage: 180 MCG, TWO PUFFS TWICE DAILY
     Route: 055
     Dates: start: 20180521

REACTIONS (25)
  - Malaise [Recovering/Resolving]
  - Oropharyngitis fungal [Not Recovered/Not Resolved]
  - Influenza [Recovering/Resolving]
  - Ageusia [Unknown]
  - Chronic obstructive pulmonary disease [Unknown]
  - Dysphonia [Recovering/Resolving]
  - Body temperature decreased [Recovering/Resolving]
  - Dyspnoea [Unknown]
  - Depression [Unknown]
  - Dyspnoea exertional [Recovering/Resolving]
  - Mycobacterium avium complex infection [Unknown]
  - Device malfunction [Unknown]
  - Mental impairment [Recovering/Resolving]
  - Weight decreased [Unknown]
  - Thinking abnormal [Not Recovered/Not Resolved]
  - Pulmonary mass [Unknown]
  - Off label use [Unknown]
  - Pneumonia [Unknown]
  - Pulmonary oedema [Unknown]
  - Foot fracture [Unknown]
  - Frustration tolerance decreased [Not Recovered/Not Resolved]
  - Pulse abnormal [Not Recovered/Not Resolved]
  - Tremor [Unknown]
  - Product dose omission [Unknown]
  - Anxiety [Unknown]

NARRATIVE: CASE EVENT DATE: 201603
